FAERS Safety Report 5167957-5 (Version None)
Quarter: 2006Q4

REPORT INFORMATION
  Report Type: 
  Country: None (occurrence: None)
  Receive Date: 20061208
  Receipt Date: 20051115
  Transmission Date: 20070319
  Serious: No
  Sender: FDA-Public Use
  Company Number: US-GLAXOSMITHKLINE-A0582375A

PATIENT
  Age: 62 Year
  Sex: Female

DRUGS (8)
  1. AVANDAMET [Suspect]
     Dosage: 1TAB TWICE PER DAY
     Route: 048
  2. THYROID TAB [Concomitant]
  3. BLOOD PRESSURE MEDICATION [Concomitant]
  4. HEART MEDICATION [Concomitant]
  5. ANTI-CHOLESTEROL MEDICATION [Concomitant]
  6. DIURETIC [Concomitant]
  7. METFORMIN [Concomitant]
  8. GLYBURIDE [Concomitant]

REACTIONS (1)
  - WEIGHT INCREASED [None]
